FAERS Safety Report 9655955 (Version 1)
Quarter: 2013Q4

REPORT INFORMATION
  Report Type: Spontaneous
  Country: US (occurrence: None)
  Receive Date: 20131029
  Receipt Date: 20131029
  Transmission Date: 20140711
  Serious: Yes (Death)
  Sender: FDA-Public Use
  Company Number: None

PATIENT
  Age: 61 Year
  Sex: Male
  Weight: 95.26 kg

DRUGS (10)
  1. XARELTO [Suspect]
     Indication: DEEP VEIN THROMBOSIS
     Route: 048
     Dates: start: 201212, end: 20130828
  2. ADVAIR [Concomitant]
  3. ROPINIROLE [Concomitant]
  4. AMLODIPINE BESYLATE [Concomitant]
  5. ATORVASTATIN [Concomitant]
  6. ALBUTEROL [Concomitant]
  7. MVI PEDIATRIC [Concomitant]
  8. FISH OIL [Concomitant]
  9. CLARITIN [Concomitant]
  10. SINGULAIR [Concomitant]

REACTIONS (7)
  - Haemorrhagic stroke [None]
  - Hydrocephalus [None]
  - Brain oedema [None]
  - Cerebral thrombosis [None]
  - Convulsion [None]
  - Coma [None]
  - Intracranial pressure increased [None]
